FAERS Safety Report 10022179 (Version 1)
Quarter: 2014Q1

REPORT INFORMATION
  Report Type: Spontaneous
  Country: US (occurrence: None)
  Receive Date: 20140318
  Receipt Date: 20140318
  Transmission Date: 20141002
  Serious: Yes (Other)
  Sender: FDA-Public Use
  Company Number: None

PATIENT
  Age: 34 Year
  Sex: Female

DRUGS (4)
  1. ACTHAR H.P. [Suspect]
     Indication: SYSTEMIC LUPUS ERYTHEMATOSUS
     Dosage: 80U/ML ORAL 047 TWICE WEEKLY
     Route: 048
     Dates: start: 20140220
  2. PREDNISONE [Concomitant]
  3. ARAVA [Concomitant]
  4. TRILEPTAL [Concomitant]

REACTIONS (3)
  - Underdose [None]
  - Wrong technique in drug usage process [None]
  - No adverse event [None]
